FAERS Safety Report 4991338-8 (Version None)
Quarter: 2006Q2

REPORT INFORMATION
  Report Type: 
  Country: None (occurrence: None)
  Receive Date: 20060428
  Receipt Date: 20060420
  Transmission Date: 20061013
  Serious: Yes (Hospitalization)
  Sender: FDA-Public Use
  Company Number: APP200600088

PATIENT
  Age: 53 Year
  Sex: Female

DRUGS (8)
  1. FLUOROURACIL INJ [Suspect]
     Indication: GASTRIC CANCER
     Dosage: SEE IMAGE
     Route: 042
     Dates: start: 20060228, end: 20060305
  2. FLUOROURACIL INJ [Suspect]
     Indication: GASTRIC CANCER
     Dosage: SEE IMAGE
     Route: 042
     Dates: start: 20060125
  3. CISPLATIN [Suspect]
     Indication: GASTRIC CANCER
     Dosage: (INTRAVENOUS DRIP), INTRAVENOUS
     Route: 042
     Dates: start: 20060228, end: 20060228
  4. CISPLATIN [Suspect]
     Indication: GASTRIC CANCER
     Dosage: (INTRAVENOUS DRIP), INTRAVENOUS
     Route: 042
     Dates: start: 20060125
  5. HYZAAR [Concomitant]
  6. PROTONIX [Concomitant]
  7. FERROUS SULFATE TAB [Concomitant]
  8. DOCUSATE (DOCUSATE) [Concomitant]

REACTIONS (17)
  - ACUTE PRERENAL FAILURE [None]
  - ASTHENIA [None]
  - CARBON DIOXIDE DECREASED [None]
  - CHEILITIS [None]
  - COUGH [None]
  - CULTURE URINE POSITIVE [None]
  - DEHYDRATION [None]
  - FEBRILE NEUTROPENIA [None]
  - HAEMATOCRIT DECREASED [None]
  - HAEMOGLOBIN DECREASED [None]
  - HAEMOPTYSIS [None]
  - HEART RATE INCREASED [None]
  - HERPES VIRUS INFECTION [None]
  - KLEBSIELLA INFECTION [None]
  - NAUSEA [None]
  - ORAL INTAKE REDUCED [None]
  - VOMITING [None]
